FAERS Safety Report 9664587 (Version 1)
Quarter: 2013Q4

REPORT INFORMATION
  Report Type: Spontaneous
  Country: FR (occurrence: FR)
  Receive Date: 20131101
  Receipt Date: 20131101
  Transmission Date: 20140711
  Serious: Yes (Other)
  Sender: FDA-Public Use
  Company Number: FR-ABBVIE-13P-056-1161682-00

PATIENT
  Sex: Female

DRUGS (2)
  1. HUMIRA [Suspect]
     Indication: CROHN^S DISEASE
     Dosage: JUST SWITCHED FROM PEN TO SYRINGE
  2. HUMIRA [Suspect]
     Dosage: HUMIRA PEN

REACTIONS (2)
  - Skin necrosis [Unknown]
  - Purpura [Unknown]
